FAERS Safety Report 25051439 (Version 1)
Quarter: 2025Q1

REPORT INFORMATION
  Report Type: Spontaneous
  Country: US (occurrence: None)
  Receive Date: 20250307
  Receipt Date: 20250307
  Transmission Date: 20250408
  Serious: Yes (Hospitalization)
  Sender: FDA-CTU
  Company Number: None

PATIENT
  Sex: Female

DRUGS (1)
  1. TYMLOS [Suspect]
     Active Substance: ABALOPARATIDE
     Indication: Product use in unapproved indication
     Dosage: INJECT 80 MCG UNDER THE SKIN ONE TIME DAILY. DISCARD PEN 30 DAYS AFTER FIRST USE.
     Route: 058
     Dates: start: 20250212

REACTIONS (5)
  - Arthralgia [None]
  - Pain [None]
  - Loss of personal independence in daily activities [None]
  - Disturbance in social behaviour [None]
  - Therapy interrupted [None]
